FAERS Safety Report 13393140 (Version 1)
Quarter: 2017Q1

REPORT INFORMATION
  Report Type: Spontaneous
  Country: RU (occurrence: RU)
  Receive Date: 20170331
  Receipt Date: 20170331
  Transmission Date: 20170429
  Serious: Yes (Other)
  Sender: FDA-Public Use
  Company Number: RU-JNJFOC-20170332773

PATIENT

DRUGS (1)
  1. BEDAQUILINE [Suspect]
     Active Substance: BEDAQUILINE
     Indication: TUBERCULOSIS
     Route: 048

REACTIONS (7)
  - Hepatitis [Unknown]
  - Eosinophilia [Unknown]
  - Electrocardiogram QT prolonged [Unknown]
  - Vomiting [Unknown]
  - Cardiac disorder [Unknown]
  - Ototoxicity [Unknown]
  - Anaemia [Unknown]
